FAERS Safety Report 11837600 (Version 1)
Quarter: 2015Q4

REPORT INFORMATION
  Report Type: Spontaneous
  Country: US (occurrence: US)
  Receive Date: 20151215
  Receipt Date: 20151215
  Transmission Date: 20160305
  Serious: No
  Sender: FDA-Public Use
  Company Number: US-SHIRE-US-002059

PATIENT
  Sex: Male

DRUGS (4)
  1. GATTEX [Suspect]
     Active Substance: TEDUGLUTIDE\WATER
     Indication: SHORT-BOWEL SYNDROME
     Dosage: DF
     Route: 058
     Dates: start: 20150423, end: 201508
  2. VITAMIN B12 [Concomitant]
     Active Substance: CYANOCOBALAMIN
     Indication: VITAMIN SUPPLEMENTATION
     Dosage: DF
  3. TPN [Concomitant]
     Active Substance: AMINO ACIDS\DEXTROSE\ELECTROLYTES NOS\SOYBEAN OIL
     Indication: MEDICAL DIET
     Dosage: DF
  4. TPN [Concomitant]
     Active Substance: AMINO ACIDS\DEXTROSE\ELECTROLYTES NOS\SOYBEAN OIL
     Dosage: DF

REACTIONS (10)
  - Malnutrition [Unknown]
  - Drug ineffective [Unknown]
  - Blood albumin decreased [Recovered/Resolved]
  - Pain in extremity [Not Recovered/Not Resolved]
  - Malaise [Not Recovered/Not Resolved]
  - Fatigue [Not Recovered/Not Resolved]
  - Burning sensation [Not Recovered/Not Resolved]
  - Oedema peripheral [Recovered/Resolved]
  - Weight decreased [Unknown]
  - Fluid retention [Recovered/Resolved]

NARRATIVE: CASE EVENT DATE: 2015
